FAERS Safety Report 9704832 (Version 1)
Quarter: 2013Q4

REPORT INFORMATION
  Report Type: Spontaneous
  Country: US (occurrence: US)
  Receive Date: 20131122
  Receipt Date: 20131122
  Transmission Date: 20140711
  Serious: Yes (Hospitalization, Other)
  Sender: FDA-Public Use
  Company Number: US-PFIZER INC-2013333924

PATIENT
  Age: 54 Year
  Sex: Female
  Weight: 84.35 kg

DRUGS (9)
  1. LYRICA [Suspect]
     Indication: FIBROMYALGIA
     Dosage: 75 MG, 1X/DAY
     Route: 048
     Dates: start: 20130101
  2. LYRICA [Suspect]
     Indication: PAIN
  3. VISTARIL [Concomitant]
     Dosage: 2 PILLS
  4. VISTARIL [Concomitant]
     Dosage: UNK
  5. TIZANIDINE [Concomitant]
     Dosage: 10 MG (2 TABLETS OF 5MG), 1X/DAY
  6. TRAMADOL [Concomitant]
     Indication: PAIN
     Dosage: 50 MG, AS NEEDED (UP TO TWO TIMES A DAY)
  7. VITAMIN D [Concomitant]
     Dosage: 1000 MG, UNK
  8. VITAMIN E [Concomitant]
     Dosage: 1000 MG, UNK
  9. LIDOCAINE [Concomitant]
     Indication: PAIN
     Dosage: UNK, AS NEEDED

REACTIONS (14)
  - Suicidal ideation [Unknown]
  - Depression [Unknown]
  - Stress [Unknown]
  - Weight decreased [Unknown]
  - Agitation [Unknown]
  - Dizziness [Unknown]
  - Gingivitis [Unknown]
  - Balance disorder [Unknown]
  - Irritability [Unknown]
  - Migraine [Unknown]
  - Somnolence [Unknown]
  - Dry mouth [Unknown]
  - Speech disorder [Unknown]
  - Panic attack [Unknown]
